FAERS Safety Report 4422066-5 (Version None)
Quarter: 2004Q3

REPORT INFORMATION
  Report Type: 
  Country: None (occurrence: None)
  Receive Date: 20040809
  Receipt Date: 20040809
  Transmission Date: 20050211
  Serious: Yes (Hospitalization)
  Sender: FDA-Public Use
  Company Number: None

PATIENT
  Age: 56 Year
  Sex: Male
  Weight: 87.9978 kg

DRUGS (2)
  1. ANTIFLU-DES CAPS [Suspect]
     Indication: INFLUENZA
     Dosage: 1 QID ORAL
     Route: 048
     Dates: start: 20040807, end: 20040807
  2. CHLORPHENARAMINE [Concomitant]

REACTIONS (2)
  - HYPERTENSION [None]
  - TACHYCARDIA [None]
